FAERS Safety Report 11414871 (Version 1)
Quarter: 2015Q3

REPORT INFORMATION
  Report Type: Spontaneous
  Country: US (occurrence: None)
  Receive Date: 20150824
  Receipt Date: 20150824
  Transmission Date: 20151125
  Serious: Yes (Hospitalization)
  Sender: FDA-Public Use
  Company Number: None

PATIENT
  Age: 58 Year
  Sex: Female
  Weight: 68 kg

DRUGS (2)
  1. METHOTREXATE [Suspect]
     Active Substance: METHOTREXATE
     Dates: end: 20150702
  2. ONCASPAR [Suspect]
     Active Substance: PEGASPARGASE
     Dates: end: 20150702

REACTIONS (7)
  - Hypotension [None]
  - Hypovolaemia [None]
  - Dehydration [None]
  - Nausea [None]
  - Hypophagia [None]
  - Asthenia [None]
  - Enterococcus test positive [None]

NARRATIVE: CASE EVENT DATE: 20150707
